FAERS Safety Report 24720191 (Version 1)
Quarter: 2024Q4

REPORT INFORMATION
  Report Type: Spontaneous
  Country: FR (occurrence: FR)
  Receive Date: 20241211
  Receipt Date: 20241211
  Transmission Date: 20250115
  Serious: Yes (Death, Other)
  Sender: AUROBINDO
  Company Number: FR-AFSSAPS-GR2024001451

PATIENT
  Age: 67 Year
  Sex: Male

DRUGS (4)
  1. CLOPIDOGREL BISULFATE [Suspect]
     Active Substance: CLOPIDOGREL BISULFATE
     Indication: Myocardial infarction
     Dosage: 300 MILLIGRAM, 1 TOTAL
     Route: 048
     Dates: start: 20241013, end: 20241013
  2. METALYSE [Suspect]
     Active Substance: TENECTEPLASE
     Indication: Myocardial infarction
     Dosage: 10000 INTERNATIONAL UNIT
     Route: 042
     Dates: start: 20241013, end: 20241013
  3. LOVENOX [Suspect]
     Active Substance: ENOXAPARIN SODIUM
     Indication: Myocardial infarction
     Dosage: 3000 INTERNATIONAL UNIT
     Route: 042
     Dates: start: 20241013, end: 20241013
  4. LOVENOX [Suspect]
     Active Substance: ENOXAPARIN SODIUM
     Dosage: 10000 INTERNATIONAL UNIT
     Route: 058
     Dates: start: 20241013, end: 20241013

REACTIONS (1)
  - Cerebral haemorrhage [Fatal]

NARRATIVE: CASE EVENT DATE: 20241013
